FAERS Safety Report 6233448-3 (Version None)
Quarter: 2009Q2

REPORT INFORMATION
  Report Type: 
  Country: None (occurrence: None)
  Receive Date: 20090617
  Receipt Date: 20090605
  Transmission Date: 20091009
  Serious: Yes (Other)
  Sender: FDA-Public Use
  Company Number: DE-ELI_LILLY_AND_COMPANY-DE200905005747

PATIENT
  Age: 78 Year
  Sex: Female
  Weight: 60 kg

DRUGS (10)
  1. FORTEO [Suspect]
     Indication: OSTEOPOROSIS
     Dosage: 20 UG, DAILY (1/D)
     Route: 058
     Dates: start: 20090428, end: 20090530
  2. PREDNISOLONE [Concomitant]
     Dosage: UNK, UNKNOWN
     Route: 065
  3. AMLODIPINE [Concomitant]
     Dosage: UNK, UNKNOWN
     Route: 065
  4. EZETROL [Concomitant]
     Dosage: UNK, UNKNOWN
     Route: 065
  5. FENOFIBRAT [Concomitant]
     Dosage: UNK, UNKNOWN
     Route: 065
  6. LEVOTHYROXINE SODIUM [Concomitant]
     Dosage: UNK, UNKNOWN
     Route: 065
  7. EPROSARTAN [Concomitant]
     Dosage: UNK, UNKNOWN
     Route: 065
  8. OMACOR [Concomitant]
     Dosage: UNK, UNKNOWN
     Route: 065
  9. ASPIRIN [Concomitant]
     Dosage: UNK, UNKNOWN
     Route: 065
  10. CARVEDILOL [Concomitant]

REACTIONS (2)
  - ATRIAL FIBRILLATION [None]
  - SUPRAVENTRICULAR EXTRASYSTOLES [None]
